FAERS Safety Report 23663244 (Version 4)
Quarter: 2024Q3

REPORT INFORMATION
  Report Type: Spontaneous
  Country: US (occurrence: US)
  Receive Date: 20240322
  Receipt Date: 20240806
  Transmission Date: 20241016
  Serious: No
  Sender: NOVARTIS
  Company Number: US-002147023-NVSC2024US059621

PATIENT
  Sex: Female

DRUGS (2)
  1. LETROZOLE [Suspect]
     Active Substance: LETROZOLE
     Indication: Product used for unknown indication
     Dosage: UNK
     Route: 065
  2. IBRANCE [Suspect]
     Active Substance: PALBOCICLIB
     Indication: Product used for unknown indication
     Dosage: 100 MG, QD (TAKE 1 TABLET BY MOUTH ONCE DAILY WITH OR WITHOUT FOOD FOR 21 DAYS, FOLLOWED BY 7 DAYS O
     Route: 048

REACTIONS (14)
  - Nail discolouration [Unknown]
  - Fungal infection [Unknown]
  - Hot flush [Unknown]
  - Chest pain [Unknown]
  - Weight decreased [Unknown]
  - Dehydration [Unknown]
  - Dry mouth [Unknown]
  - Tongue dry [Unknown]
  - Decreased appetite [Unknown]
  - Dizziness [Unknown]
  - Proctalgia [Unknown]
  - Alopecia [Unknown]
  - Diarrhoea [Unknown]
  - Constipation [Unknown]

NARRATIVE: CASE EVENT DATE: 20240315
